FAERS Safety Report 20433225 (Version 1)
Quarter: 2022Q1

REPORT INFORMATION
  Report Type: Spontaneous
  Country: US (occurrence: US)
  Receive Date: 20220205
  Receipt Date: 20220205
  Transmission Date: 20220423
  Serious: No
  Sender: FDA-Public Use
  Company Number: US-SANOFI-00802630

PATIENT
  Age: 61 Year
  Sex: Female

DRUGS (10)
  1. DUPILUMAB [Suspect]
     Active Substance: DUPILUMAB
     Indication: Dermatitis atopic
     Dosage: 300 MG, QOW
     Route: 058
     Dates: start: 202110
  2. MENTHOL [Concomitant]
     Active Substance: MENTHOL
  3. TACROLIMUS [Concomitant]
     Active Substance: TACROLIMUS
  4. BETAMETHASONE [Concomitant]
     Active Substance: BETAMETHASONE
  5. METRONIDAZOLE [Concomitant]
     Active Substance: METRONIDAZOLE
  6. VICKS NYQUIL [Concomitant]
     Active Substance: ACETAMINOPHEN\DEXTROMETHORPHAN HYDROBROMIDE\DOXYLAMINE SUCCINATE
  7. ZINC [Concomitant]
     Active Substance: ZINC
  8. AQUAPHOR [WHITE SOFT PARAFFIN] [Concomitant]
  9. VITAMIN C [Concomitant]
     Active Substance: ASCORBIC ACID
  10. VITAMIN D3 [Concomitant]
     Active Substance: CHOLECALCIFEROL

REACTIONS (4)
  - Injection site bruising [Not Recovered/Not Resolved]
  - Nasopharyngitis [Unknown]
  - Injection site erythema [Recovered/Resolved]
  - Injection site swelling [Unknown]

NARRATIVE: CASE EVENT DATE: 20211005
